FAERS Safety Report 11269980 (Version 2)
Quarter: 2015Q3

REPORT INFORMATION
  Report Type: Spontaneous
  Country: FR (occurrence: FR)
  Receive Date: 20150714
  Receipt Date: 20150807
  Transmission Date: 20151125
  Serious: Yes (Hospitalization, Other)
  Sender: FDA-Public Use
  Company Number: FR-PFIZER INC-2015223610

PATIENT
  Age: 82 Year
  Sex: Male

DRUGS (10)
  1. TAHOR [Concomitant]
     Active Substance: ATORVASTATIN CALCIUM
     Dosage: UNK
  2. BARACLUDE [Concomitant]
     Active Substance: ENTECAVIR
     Dosage: 1 DF, DAILY
  3. BISOCE [Concomitant]
     Active Substance: BISOPROLOL
     Dosage: 2.5 MG, DAILY
     Dates: start: 20150417
  4. MOVICOL [Concomitant]
     Active Substance: POLYETHYLENE GLYCOL 3350\POTASSIUM CHLORIDE\SODIUM BICARBONATE\SODIUM CHLORIDE
     Dosage: UNK, AS NEEDED
  5. ALDACTONE [Suspect]
     Active Substance: SPIRONOLACTONE
     Dosage: 50 MG, 2X/DAY
     Route: 048
     Dates: end: 20150414
  6. LASILIX /00032601/ [Suspect]
     Active Substance: FUROSEMIDE
     Dosage: 500 MG, 2X/DAY
     Route: 048
     Dates: end: 20150417
  7. BISOCE [Concomitant]
     Active Substance: BISOPROLOL
     Dosage: UNK
     Dates: start: 201504
  8. RAMIPRIL. [Suspect]
     Active Substance: RAMIPRIL
     Dosage: 10 MG, DAILY
     Route: 048
     Dates: end: 20150414
  9. INEXIUM /01479302/ [Concomitant]
     Active Substance: ESOMEPRAZOLE MAGNESIUM
     Dosage: 1 DF, DAILY
  10. KARDEGIC [Concomitant]
     Active Substance: ASPIRIN LYSINE
     Dosage: 1 DF, DAILY

REACTIONS (3)
  - Acute kidney injury [Recovering/Resolving]
  - Heart rate decreased [Unknown]
  - Blood pressure decreased [Unknown]

NARRATIVE: CASE EVENT DATE: 20150412
